FAERS Safety Report 6819853-2 (Version None)
Quarter: 2010Q2

REPORT INFORMATION
  Report Type: 
  Country: None (occurrence: None)
  Receive Date: 20100630
  Receipt Date: 20100618
  Transmission Date: 20101027
  Serious: Yes (Other)
  Sender: FDA-Public Use
  Company Number: 2010-2195

PATIENT
  Sex: Female

DRUGS (1)
  1. DYSPORT [Suspect]
     Indication: HEADACHE
     Dosage: SINGLE
     Dates: start: 20100201, end: 20100201

REACTIONS (10)
  - DYSPNOEA [None]
  - EYE INFECTION [None]
  - EYELID PTOSIS [None]
  - HYPERSENSITIVITY [None]
  - INJECTION SITE HAEMORRHAGE [None]
  - PYREXIA [None]
  - RASH GENERALISED [None]
  - SKIN EXFOLIATION [None]
  - UNEVALUABLE EVENT [None]
  - VISUAL IMPAIRMENT [None]
